FAERS Safety Report 22986814 (Version 3)
Quarter: 2023Q4

REPORT INFORMATION
  Report Type: Spontaneous
  Country: US (occurrence: US)
  Receive Date: 20230926
  Receipt Date: 20231222
  Transmission Date: 20240110
  Serious: No
  Sender: FDA-Public Use
  Company Number: US-PFIZER INC-PV202300160759

PATIENT
  Age: 81 Year
  Sex: Female
  Weight: 73.016 kg

DRUGS (1)
  1. IBRANCE [Suspect]
     Active Substance: PALBOCICLIB
     Dosage: 100 MG, 1X/DAY

REACTIONS (4)
  - Vertigo [Unknown]
  - Hot flush [Unknown]
  - Fatigue [Unknown]
  - Product dose omission in error [Unknown]
